FAERS Safety Report 24239379 (Version 1)
Quarter: 2024Q3

REPORT INFORMATION
  Report Type: Report from Study
  Country: US (occurrence: None)
  Receive Date: 20240822
  Receipt Date: 20240822
  Transmission Date: 20241017
  Serious: Yes (Other)
  Sender: ASTRAZENECA
  Company Number: 2024A186867

PATIENT
  Sex: Female

DRUGS (2)
  1. TEZSPIRE [Suspect]
     Active Substance: TEZEPELUMAB-EKKO
     Indication: Asthma
     Dosage: 210MG/ML EVERY FOUR WEEKS
     Route: 058
  2. NEXIUM [Suspect]
     Active Substance: ESOMEPRAZOLE MAGNESIUM
     Dosage: 40.0MG UNKNOWN
     Route: 048

REACTIONS (30)
  - Porokeratosis [Unknown]
  - Carotid artery stenosis [Unknown]
  - Chronic obstructive pulmonary disease [Recovering/Resolving]
  - Pulmonary mass [Unknown]
  - Lumbar radiculopathy [Unknown]
  - Nasal septum disorder [Unknown]
  - Onychomycosis [Unknown]
  - Bronchiectasis [Unknown]
  - Tracheomalacia [Unknown]
  - Aortic arteriosclerosis [Unknown]
  - Aortic disorder [Unknown]
  - Peripheral venous disease [Unknown]
  - Micturition urgency [Unknown]
  - Pollakiuria [Unknown]
  - Hypertonic bladder [Unknown]
  - Tuberculosis [Unknown]
  - Immunodeficiency [Unknown]
  - Purpura non-thrombocytopenic [Unknown]
  - Rectocele [Unknown]
  - Abdominal pain [Unknown]
  - Vomiting [Unknown]
  - Diarrhoea [Unknown]
  - Osteoarthritis [Unknown]
  - Foot deformity [Unknown]
  - Foot deformity [Unknown]
  - Pain in extremity [Unknown]
  - Back pain [Unknown]
  - Gait disturbance [Unknown]
  - Blood creatine phosphokinase increased [Unknown]
  - Sinus disorder [Unknown]
